FAERS Safety Report 24632118 (Version 1)
Quarter: 2024Q4

REPORT INFORMATION
  Report Type: Spontaneous
  Country: CN (occurrence: CN)
  Receive Date: 20241118
  Receipt Date: 20241118
  Transmission Date: 20250115
  Serious: Yes (Hospitalization, Other)
  Sender: BAXTER
  Company Number: None

PATIENT
  Age: 12 Year
  Sex: Female

DRUGS (4)
  1. CYCLOPHOSPHAMIDE [Suspect]
     Active Substance: CYCLOPHOSPHAMIDE
     Indication: Anti-neutrophil cytoplasmic antibody positive vasculitis
     Dosage: 200 MG
     Route: 041
     Dates: start: 20240928
  2. CYCLOPHOSPHAMIDE [Suspect]
     Active Substance: CYCLOPHOSPHAMIDE
     Dosage: 0.2 G, ONE TIME IN ONE DAY
     Route: 041
     Dates: start: 20241028, end: 20241028
  3. SODIUM CHLORIDE [Suspect]
     Active Substance: SODIUM CHLORIDE
     Indication: Anti-neutrophil cytoplasmic antibody positive vasculitis
     Dosage: 250 ML, ONE TIME IN ONE DAY ([COLON] [DIRECT] [STERILIZED] [0.9%?250ML])
     Route: 041
     Dates: start: 20240928, end: 20240928
  4. SODIUM CHLORIDE [Suspect]
     Active Substance: SODIUM CHLORIDE
     Dosage: 250 ML, ONE TIME IN ONE DAY ([COLON] [DIRECT] [STERILIZED] [0.9%?250ML])
     Route: 041
     Dates: start: 20240928, end: 20240928

REACTIONS (4)
  - Hypokalaemia [Not Recovered/Not Resolved]
  - Anti-neutrophil cytoplasmic antibody positive vasculitis [Not Recovered/Not Resolved]
  - Haematuria [Not Recovered/Not Resolved]
  - Oedema [Unknown]

NARRATIVE: CASE EVENT DATE: 20241005
